FAERS Safety Report 6385531-X (Version None)
Quarter: 2009Q4

REPORT INFORMATION
  Report Type: 
  Country: None (occurrence: None)
  Receive Date: 20091002
  Receipt Date: 20080910
  Transmission Date: 20100525
  Serious: No
  Sender: FDA-Public Use
  Company Number: US-ASTRAZENECA-2008UW18732

PATIENT
  Age: 83 Year
  Sex: Female
  Weight: 76.7 kg

DRUGS (5)
  1. ARIMIDEX [Suspect]
     Indication: BREAST CANCER
     Route: 048
     Dates: start: 20080301
  2. COUMADIN [Concomitant]
  3. DILTIAZEM [Concomitant]
  4. CALCIUM [Concomitant]
     Route: 041
  5. VITAMIN D [Concomitant]

REACTIONS (4)
  - ANKLE FRACTURE [None]
  - ARTHRALGIA [None]
  - PAIN IN EXTREMITY [None]
  - PLEURISY [None]
